FAERS Safety Report 14938538 (Version 1)
Quarter: 2018Q2

REPORT INFORMATION
  Report Type: Spontaneous
  Country: US (occurrence: US)
  Receive Date: 20180525
  Receipt Date: 20180525
  Transmission Date: 20180711
  Serious: Yes (Hospitalization)
  Sender: FDA-Public Use
  Company Number: US-JNJFOC-20180531638

PATIENT
  Age: 58 Year
  Sex: Male

DRUGS (1)
  1. INVOKANA [Suspect]
     Active Substance: CANAGLIFLOZIN
     Indication: DIABETES MELLITUS
     Route: 048
     Dates: start: 20170206

REACTIONS (5)
  - Osteomyelitis [Unknown]
  - Leg amputation [Unknown]
  - Diabetic ulcer [Unknown]
  - Cellulitis [Unknown]
  - Toe amputation [Recovering/Resolving]

NARRATIVE: CASE EVENT DATE: 20170313
